FAERS Safety Report 4758891-0 (Version None)
Quarter: 2005Q3

REPORT INFORMATION
  Report Type: 
  Country: None (occurrence: None)
  Receive Date: 20050826
  Receipt Date: 20050817
  Transmission Date: 20060218
  Serious: Yes (Other)
  Sender: FDA-Public Use
  Company Number: 2005117605

PATIENT
  Age: 43 Year
  Sex: Female

DRUGS (7)
  1. CELEBREX [Suspect]
     Indication: INFLAMMATION
     Dosage: 200 MG (200 MG, 1 IN 1D), ORAL
     Route: 048
     Dates: start: 20010101
  2. CELEBREX [Suspect]
     Indication: PAIN
     Dosage: 200 MG (200 MG, 1 IN 1D), ORAL
     Route: 048
     Dates: start: 20010101
  3. MOTRIN [Suspect]
     Indication: INFLAMMATION
  4. MOTRIN [Suspect]
     Indication: PAIN
  5. NAPROXEN [Suspect]
     Indication: ILL-DEFINED DISORDER
  6. ALLEGRA [Concomitant]
  7. EFFEXOR XR [Concomitant]

REACTIONS (9)
  - ABNORMAL BEHAVIOUR [None]
  - ANAL HAEMORRHAGE [None]
  - ARTHRITIS [None]
  - CONVULSION [None]
  - DRUG INEFFECTIVE [None]
  - HEADACHE [None]
  - HYPERSENSITIVITY [None]
  - JOINT STIFFNESS [None]
  - TREATMENT NONCOMPLIANCE [None]
